FAERS Safety Report 8471953-X (Version None)
Quarter: 2012Q2

REPORT INFORMATION
  Report Type: 
  Country: None (occurrence: None)
  Receive Date: 20120627
  Receipt Date: 20120618
  Transmission Date: 20120825
  Serious: Yes (Hospitalization, Other)
  Sender: FDA-Public Use
  Company Number: US-GENZYME-THYM-1003296

PATIENT
  Sex: Female
  Weight: 60.4 kg

DRUGS (29)
  1. GAMMAGARD [Concomitant]
     Indication: PRODUCT USED FOR UNKNOWN INDICATION
     Dosage: 500 MG/KG, ONCE
     Route: 042
     Dates: start: 20011104, end: 20111104
  2. CELLCEPT [Concomitant]
     Dosage: 500 MG, BID
     Route: 048
     Dates: start: 20111101, end: 20111103
  3. PROGRAF [Concomitant]
     Dosage: 5 MG, EVERY MORNING
     Route: 048
     Dates: start: 20111031, end: 20111101
  4. ROXICODONE [Concomitant]
     Indication: PAIN
     Dosage: 5-10 MG EVERY 4 HOURS, PRN
     Route: 048
     Dates: start: 20111031, end: 20111105
  5. CELLCEPT [Concomitant]
     Dosage: 250 MG, BID
     Route: 048
     Dates: start: 20111103, end: 20111105
  6. PROTONIX [Concomitant]
     Indication: PRODUCT USED FOR UNKNOWN INDICATION
     Dosage: 40 MG, QD
     Route: 048
     Dates: start: 20111031, end: 20111105
  7. DELTASONE [Concomitant]
     Dosage: 5 MG, QD
     Route: 048
  8. BACTRIM [Concomitant]
     Indication: PRODUCT USED FOR UNKNOWN INDICATION
     Dosage: 1 TAB, DAILY
     Route: 048
     Dates: start: 20111031, end: 20111101
  9. BACTRIM [Concomitant]
     Dosage: 1 TAB, DAILY
     Route: 048
  10. DEXLANSOPRAZOLE [Concomitant]
     Indication: PRODUCT USED FOR UNKNOWN INDICATION
     Dosage: 60 MG, PRN
     Route: 048
  11. CELLCEPT [Concomitant]
     Indication: PRODUCT USED FOR UNKNOWN INDICATION
     Dosage: 500 MG, TID
     Route: 048
     Dates: start: 20111003, end: 20111101
  12. ZOFRAN [Concomitant]
     Indication: NAUSEA
     Dosage: 4 MG,EVERY 6 HOURS, AS REQUIRED
     Route: 042
     Dates: start: 20111031, end: 20111105
  13. DELTASONE [Concomitant]
     Indication: PRODUCT USED FOR UNKNOWN INDICATION
     Dosage: 5 MG, QD
     Route: 048
     Dates: start: 20111031, end: 20111105
  14. MAXALT [Concomitant]
     Indication: MIGRAINE
     Dosage: 10 MG, ONCE; PRN
     Route: 048
     Dates: start: 20111031, end: 20111105
  15. MAXALT [Concomitant]
     Dosage: 10 MG, ONCE; PRN
     Route: 048
  16. PROGRAF [Concomitant]
     Dosage: 6 MG, BID
     Route: 048
     Dates: start: 20111101
  17. ACETAMINOPHEN [Concomitant]
     Indication: PRODUCT USED FOR UNKNOWN INDICATION
     Dosage: 650 MG, ONCE
     Route: 048
     Dates: start: 20111031, end: 20111031
  18. BENADRYL [Concomitant]
     Indication: PRODUCT USED FOR UNKNOWN INDICATION
     Dosage: 25 MG, ONCE
     Route: 048
     Dates: start: 20111031, end: 20111031
  19. FOLVITE [Concomitant]
     Indication: PRODUCT USED FOR UNKNOWN INDICATION
     Dosage: 1 MG, QD
     Route: 048
     Dates: start: 20090117
  20. PROGRAF [Concomitant]
     Indication: PRODUCT USED FOR UNKNOWN INDICATION
     Dosage: 6 MG, EVERY EVENING
     Route: 048
     Dates: start: 20111031, end: 20111105
  21. FLOMAX [Concomitant]
     Indication: PRODUCT USED FOR UNKNOWN INDICATION
     Dosage: 0.4 MG, QD,AT BEDTIME
     Route: 048
     Dates: start: 20110426
  22. VITAMIN D [Concomitant]
     Indication: PRODUCT USED FOR UNKNOWN INDICATION
     Dosage: 3000 U, UNK
     Route: 048
     Dates: start: 20110701
  23. XANAX [Concomitant]
     Indication: ANXIETY
     Dosage: 0.25 MG, TID
     Dates: start: 20090418
  24. THYMOGLOBULIN [Suspect]
     Indication: PROPHYLAXIS AGAINST TRANSPLANT REJECTION
     Dosage: UNK
     Dates: start: 20110407, end: 20110422
  25. CELLCEPT [Concomitant]
     Dosage: 250 MG, BID
     Route: 048
     Dates: start: 20111101
  26. MYCOSTATIN [Concomitant]
     Indication: PRODUCT USED FOR UNKNOWN INDICATION
     Dosage: 100000 U/ML, QID
     Route: 048
     Dates: start: 20111031, end: 20111106
  27. PROGRAF [Concomitant]
     Dosage: 6 MG, EVERY MORNING
     Route: 048
     Dates: start: 20111101, end: 20111105
  28. VALCYTE [Concomitant]
     Indication: PRODUCT USED FOR UNKNOWN INDICATION
     Dosage: 450 MG, QD
     Route: 048
     Dates: start: 20111027
  29. PERCOCET [Concomitant]
     Indication: PRODUCT USED FOR UNKNOWN INDICATION
     Dosage: 1 TAB EVERY 4 HOURS, AS NEEDED
     Route: 048

REACTIONS (9)
  - NAUSEA [None]
  - DIARRHOEA [None]
  - LEUKOPENIA [None]
  - TRANSPLANT REJECTION [None]
  - RENAL FAILURE ACUTE [None]
  - PYELONEPHRITIS FUNGAL [None]
  - VOMITING [None]
  - DIABETES MELLITUS [None]
  - ANAEMIA [None]
